FAERS Safety Report 10426626 (Version 1)
Quarter: 2014Q3

REPORT INFORMATION
  Report Type: Report from Study
  Country: US (occurrence: US)
  Receive Date: 20140903
  Receipt Date: 20140903
  Transmission Date: 20150326
  Serious: Yes (Hospitalization, Other)
  Sender: FDA-Public Use
  Company Number: US-SA-2014SA116988

PATIENT
  Sex: Male

DRUGS (2)
  1. SOLOSTAR [Concomitant]
     Active Substance: DEVICE
  2. LANTUS SOLOSTAR [Suspect]
     Active Substance: INSULIN GLARGINE
     Indication: DIABETES MELLITUS
     Dosage: DOSE:40 UNIT(S)
     Route: 065

REACTIONS (5)
  - Hospitalisation [Unknown]
  - Renal failure [Unknown]
  - Medical induction of coma [Recovered/Resolved]
  - Cardiac failure congestive [Unknown]
  - Abasia [Unknown]

NARRATIVE: CASE EVENT DATE: 2011
